FAERS Safety Report 10280924 (Version 1)
Quarter: 2014Q3

REPORT INFORMATION
  Report Type: Spontaneous
  Country: US (occurrence: None)
  Receive Date: 20140702
  Receipt Date: 20140702
  Transmission Date: 20150326
  Serious: Yes (Hospitalization)
  Sender: FDA-Public Use
  Company Number: None

PATIENT
  Age: 34 Year
  Sex: Male
  Weight: 73.48 kg

DRUGS (1)
  1. LEVOFLOXACIN 500 MG [Suspect]
     Active Substance: LEVOFLOXACIN
     Indication: SINUSITIS
     Dosage: 1 PILL ONCE DAILY TAKEN BY MOUTH
     Route: 048

REACTIONS (7)
  - Paraesthesia [None]
  - Mood swings [None]
  - Disorientation [None]
  - Chills [None]
  - Back pain [None]
  - Muscular weakness [None]
  - Hypoaesthesia [None]

NARRATIVE: CASE EVENT DATE: 20140630
